FAERS Safety Report 7888726-9 (Version None)
Quarter: 2011Q4

REPORT INFORMATION
  Report Type: 
  Country: None (occurrence: None)
  Receive Date: 20111103
  Receipt Date: 20111025
  Transmission Date: 20120403
  Serious: Yes (Other)
  Sender: FDA-Public Use
  Company Number: US-PFIZER INC-2005093296

PATIENT
  Sex: Female

DRUGS (11)
  1. PROVERA [Suspect]
     Indication: HORMONE REPLACEMENT THERAPY
     Dosage: UNK
     Route: 048
     Dates: start: 19880101, end: 19971201
  2. ACETAMINOPHEN AND HYDROCODONE BITARTRATE [Concomitant]
     Indication: BACK PAIN
     Dosage: UNK
     Dates: start: 20000701, end: 20040501
  3. PREMARIN [Suspect]
     Indication: HORMONE REPLACEMENT THERAPY
     Dosage: UNK
     Route: 048
     Dates: start: 19880101, end: 19971201
  4. VIOXX [Concomitant]
     Indication: OSTEOARTHRITIS
     Dosage: 25 MG, 1X/DAY
     Dates: start: 20000401, end: 20020901
  5. EFFEXOR XR [Concomitant]
     Dosage: UNK
     Dates: start: 20050901
  6. CARDURA [Concomitant]
     Indication: HYPERTENSION
     Dosage: 8 MG, UNK
     Dates: start: 19800101, end: 20030101
  7. EFFEXOR XR [Concomitant]
     Indication: DEPRESSION
     Dosage: UNK
     Dates: start: 19980901, end: 20040701
  8. PRILOSEC [Concomitant]
     Indication: GASTROOESOPHAGEAL REFLUX DISEASE
     Dosage: UNK
     Dates: start: 19990301, end: 20030901
  9. MEDROXYPROGESTERONE ACETATE [Suspect]
     Indication: HORMONE REPLACEMENT THERAPY
     Dosage: UNK
     Route: 048
     Dates: start: 19880101, end: 19971201
  10. PREMPRO [Suspect]
     Indication: HORMONE REPLACEMENT THERAPY
     Dosage: 0.625/2.5MG
     Route: 048
     Dates: start: 19980101, end: 20000801
  11. ALPRAZOLAM [Concomitant]
     Indication: ANXIETY
     Dosage: UNK
     Dates: start: 19980901, end: 20031101

REACTIONS (1)
  - BREAST CANCER FEMALE [None]
